FAERS Safety Report 11627170 (Version 1)
Quarter: 2015Q4

REPORT INFORMATION
  Report Type: Report from Study
  Country: US (occurrence: US)
  Receive Date: 20151013
  Receipt Date: 20151013
  Transmission Date: 20160304
  Serious: No
  Sender: FDA-Public Use
  Company Number: US-AMGEN-USASL2015008073

PATIENT
  Age: 85 Year
  Sex: Male

DRUGS (7)
  1. NEUPOGEN [Suspect]
     Active Substance: FILGRASTIM
     Indication: PRODUCT USED FOR UNKNOWN INDICATION
     Dosage: UNK
     Route: 065
  2. BENADRYL [Concomitant]
     Active Substance: DIPHENHYDRAMINE HYDROCHLORIDE
     Dosage: IN 500 CC NORMAL SALINE (50 MG)
     Route: 042
  3. HEXADROL [Concomitant]
     Active Substance: DEXAMETHASONE
     Dosage: 10 MG, UNK
  4. RITUXAN [Suspect]
     Active Substance: RITUXIMAB
     Indication: CHRONIC LYMPHOCYTIC LEUKAEMIA
     Dosage: 1000 MG, 1 IN 1 WK
     Route: 042
     Dates: start: 20010315
  5. CYTOXAN [Concomitant]
     Active Substance: CYCLOPHOSPHAMIDE
     Dosage: UNK
  6. FLUDARABINE [Concomitant]
     Active Substance: FLUDARABINE PHOSPHATE
     Dosage: UNK
  7. TYLENOL [Concomitant]
     Active Substance: ACETAMINOPHEN
     Dosage: 1000 MG, UNK
     Route: 048

REACTIONS (3)
  - Asthenia [Unknown]
  - Fatigue [Unknown]
  - Pyrexia [Unknown]
